FAERS Safety Report 4460459-0 (Version None)
Quarter: 2004Q3

REPORT INFORMATION
  Report Type: 
  Country: None (occurrence: None)
  Receive Date: 20040928
  Receipt Date: 20040809
  Transmission Date: 20050211
  Serious: No
  Sender: FDA-Public Use
  Company Number: US-GLAXOSMITHKLINE-A0521527A

PATIENT
  Age: 68 Year
  Sex: Male

DRUGS (3)
  1. SEREVENT [Suspect]
     Dosage: 2PUFF PER DAY
     Route: 055
     Dates: start: 20040801
  2. ALBUTEROL [Concomitant]
  3. FLONASE [Concomitant]

REACTIONS (1)
  - DIZZINESS [None]
